FAERS Safety Report 4347744-8 (Version None)
Quarter: 2004Q1

REPORT INFORMATION
  Report Type: 
  Country: None (occurrence: None)
  Receive Date: 20040325
  Receipt Date: 20040119
  Transmission Date: 20041129
  Serious: No
  Sender: FDA-Public Use
  Company Number: USA040156975

PATIENT
  Age: 80 Year
  Sex: Female

DRUGS (2)
  1. FORTEO [Suspect]
     Dates: start: 20040115
  2. LIPITOR [Concomitant]

REACTIONS (3)
  - DIZZINESS [None]
  - INJECTION SITE HAEMORRHAGE [None]
  - NAUSEA [None]
